FAERS Safety Report 24875389 (Version 1)
Quarter: 2025Q1

REPORT INFORMATION
  Report Type: Spontaneous
  Country: US (occurrence: US)
  Receive Date: 20250122
  Receipt Date: 20250122
  Transmission Date: 20250409
  Serious: No
  Sender: JOHNSON AND JOHNSON
  Company Number: US-JNJFOC-20241274304

PATIENT
  Age: 78 Year
  Sex: Female
  Weight: 81.6 kg

DRUGS (24)
  1. OPSUMIT [Suspect]
     Active Substance: MACITENTAN
     Indication: Product used for unknown indication
     Route: 048
  2. TREPROSTINIL SODIUM [Suspect]
     Active Substance: TREPROSTINIL SODIUM
     Indication: Product used for unknown indication
  3. CRESTOR [Concomitant]
     Active Substance: ROSUVASTATIN CALCIUM
  4. FISH OIL [Concomitant]
     Active Substance: FISH OIL
  5. COENZYME Q10 [Concomitant]
     Active Substance: DIETARY SUPPLEMENT\UBIDECARENONE
  6. SINGULAIR [Concomitant]
     Active Substance: MONTELUKAST SODIUM
  7. ACETAMINOPHEN\HYDROCODONE [Concomitant]
     Active Substance: ACETAMINOPHEN\HYDROCODONE
  8. FOLIC ACID [Concomitant]
     Active Substance: FOLIC ACID
  9. PANTOPRAZOLE SODIUM [Concomitant]
     Active Substance: PANTOPRAZOLE SODIUM
  10. DAILY VITE [ASCORBIC ACID;CALCIUM PANTOTHENATE;COLECALCIFEROL;CYANOCOB [Concomitant]
  11. ELIQUIS [Concomitant]
     Active Substance: APIXABAN
  12. FENOFIBRATE [Concomitant]
     Active Substance: FENOFIBRATE
  13. ALBUTEROL SULFATE [Concomitant]
     Active Substance: ALBUTEROL SULFATE
  14. CLONIDINE [Concomitant]
     Active Substance: CLONIDINE
  15. HERBALS\TURMERIC [Concomitant]
     Active Substance: HERBALS\TURMERIC
  16. IRON [Concomitant]
     Active Substance: IRON
  17. NORVASC [Concomitant]
     Active Substance: AMLODIPINE BESYLATE
  18. METHOTREXATE [Concomitant]
     Active Substance: METHOTREXATE
  19. ZETIA [Concomitant]
     Active Substance: EZETIMIBE
  20. SPIRONOLACTONE [Concomitant]
     Active Substance: SPIRONOLACTONE
  21. OXYGEN [Concomitant]
     Active Substance: OXYGEN
  22. LEVOTHYROXINE SODIUM [Concomitant]
     Active Substance: LEVOTHYROXINE SODIUM
  23. TORSEMIDE [Concomitant]
     Active Substance: TORSEMIDE
  24. HYDRALAZINE HCL [Concomitant]
     Active Substance: HYDRALAZINE HYDROCHLORIDE

REACTIONS (3)
  - Fluid retention [Unknown]
  - Fatigue [Unknown]
  - Generalised oedema [Recovering/Resolving]
